FAERS Safety Report 12726123 (Version 1)
Quarter: 2016Q3

REPORT INFORMATION
  Report Type: Spontaneous
  Country: TR (occurrence: TR)
  Receive Date: 20160908
  Receipt Date: 20160908
  Transmission Date: 20161109
  Serious: Yes (Other)
  Sender: FDA-Public Use
  Company Number: TR-MYLANLABS-2016M1037558

PATIENT

DRUGS (1)
  1. CAPECITABINE. [Suspect]
     Active Substance: CAPECITABINE
     Indication: NEUROENDOCRINE CARCINOMA
     Dosage: 1500 MG/M2/DAY; DIVIDED TWICE DAILY
     Route: 048
     Dates: start: 201405

REACTIONS (2)
  - Drug eruption [Recovering/Resolving]
  - Dermatitis acneiform [Recovering/Resolving]
